FAERS Safety Report 5318220-0 (Version None)
Quarter: 2007Q2

REPORT INFORMATION
  Report Type: 
  Country: None (occurrence: None)
  Receive Date: 20070507
  Receipt Date: 20070425
  Transmission Date: 20071010
  Serious: Yes (Death, Hospitalization)
  Sender: FDA-Public Use
  Company Number: GB-PFIZER INC-2007032190

PATIENT
  Sex: Male

DRUGS (10)
  1. SU-011,248 [Suspect]
     Indication: RENAL CELL CARCINOMA STAGE UNSPECIFIED
     Route: 048
     Dates: start: 20060801, end: 20070401
  2. SENNA [Concomitant]
     Indication: PROPHYLAXIS
     Route: 048
     Dates: start: 20051101
  3. FENTANYL [Concomitant]
     Indication: BACK PAIN
     Route: 048
     Dates: start: 20051223
  4. CO-CODAMOL [Concomitant]
     Indication: BACK PAIN
     Route: 048
     Dates: start: 20050701
  5. SEVREDOL [Concomitant]
     Indication: BACK PAIN
     Route: 048
     Dates: start: 20051223
  6. FOSINOPRIL SODIUM [Concomitant]
     Indication: HYPERTENSION
     Route: 048
     Dates: start: 20000101
  7. AMLODIPINE [Concomitant]
     Indication: HYPERTENSION
     Route: 048
     Dates: start: 20000101
  8. SIMVASTATIN [Concomitant]
     Indication: CEREBROVASCULAR ACCIDENT
     Route: 048
     Dates: start: 20000101
  9. ASPIRIN [Concomitant]
     Indication: CEREBROVASCULAR ACCIDENT
     Route: 048
     Dates: start: 20000101
  10. PREDNISOLONE [Concomitant]
     Indication: ANOREXIA
     Route: 048
     Dates: start: 20070319

REACTIONS (5)
  - CHEST PAIN [None]
  - DISEASE PROGRESSION [None]
  - RENAL CELL CARCINOMA STAGE UNSPECIFIED [None]
  - RENAL FAILURE [None]
  - VOMITING [None]
